FAERS Safety Report 22899470 (Version 2)
Quarter: 2023Q4

REPORT INFORMATION
  Report Type: Spontaneous
  Country: DE (occurrence: DE)
  Receive Date: 20230904
  Receipt Date: 20231207
  Transmission Date: 20240110
  Serious: Yes (Hospitalization, Other)
  Sender: FDA-Public Use
  Company Number: DE-BRISTOL-MYERS SQUIBB COMPANY-2023-123511

PATIENT
  Age: 83 Year
  Sex: Male

DRUGS (9)
  1. NIVOLUMAB [Suspect]
     Active Substance: NIVOLUMAB
     Indication: Non-small cell lung cancer
     Dosage: DOSE : 360 MG;     FREQ : EVERY 4 WEEKS
     Dates: start: 20230201
  2. NIVOLUMAB [Suspect]
     Active Substance: NIVOLUMAB
     Dosage: DOSE : 360 MG;     FREQ : EVERY 4 WEEKS
     Dates: start: 20230227
  3. NIVOLUMAB [Suspect]
     Active Substance: NIVOLUMAB
     Dosage: DOSE : 360 MG;     FREQ : EVERY 4 WEEKS
     Dates: start: 20230320
  4. NIVOLUMAB [Suspect]
     Active Substance: NIVOLUMAB
     Dosage: DOSE : 360 MG;     FREQ : EVERY 4 WEEKS
     Dates: start: 20230411
  5. VITAMIN B12 [Concomitant]
     Active Substance: CYANOCOBALAMIN
     Indication: Product used for unknown indication
  6. FOLIC ACID [Concomitant]
     Active Substance: FOLIC ACID
     Indication: Product used for unknown indication
  7. CARBOPLATIN [Concomitant]
     Active Substance: CARBOPLATIN
     Indication: Non-small cell lung cancer
     Dosage: REDUCED DOSE (60%) CARBOPLATIN AUC3
     Dates: start: 20230201
  8. PEMETREXED [Concomitant]
     Active Substance: PEMETREXED
     Indication: Non-small cell lung cancer
     Dosage: REDUCED DOSE (60%) CARBOPLATIN AUC3
     Dates: start: 20230201
  9. NEULASTA [Concomitant]
     Active Substance: PEGFILGRASTIM
     Indication: Non-small cell lung cancer
     Dosage: D2
     Dates: start: 20230201

REACTIONS (6)
  - Neutropenia [Unknown]
  - Thrombocytopenia [Unknown]
  - Diarrhoea [Unknown]
  - Nausea [Unknown]
  - Off label use [Unknown]
  - Infection [Unknown]

NARRATIVE: CASE EVENT DATE: 20230207
